FAERS Safety Report 6114455-8 (Version None)
Quarter: 2009Q1

REPORT INFORMATION
  Report Type: 
  Country: None (occurrence: None)
  Receive Date: 20090313
  Receipt Date: 20090219
  Transmission Date: 20090719
  Serious: Yes (Other)
  Sender: FDA-Public Use
  Company Number: US-BAYER-200913691GPV

PATIENT
  Sex: Female
  Weight: 0.5 kg

DRUGS (1)
  1. LEPIRUDIN [Suspect]
     Indication: HEPARIN-INDUCED THROMBOCYTOPENIA
     Route: 064

REACTIONS (1)
  - BRONCHOPULMONARY DYSPLASIA [None]
